FAERS Safety Report 8212081-8 (Version None)
Quarter: 2012Q1

REPORT INFORMATION
  Report Type: 
  Country: None (occurrence: None)
  Receive Date: 20120315
  Receipt Date: 20120312
  Transmission Date: 20120608
  Serious: Yes (Life-Threatening, Other)
  Sender: FDA-Public Use
  Company Number: FR-ROCHE-1044735

PATIENT
  Sex: Male
  Weight: 68 kg

DRUGS (1)
  1. VEMURAFENIB [Suspect]
     Indication: METASTATIC MALIGNANT MELANOMA
     Route: 048

REACTIONS (6)
  - WEIGHT DECREASED [None]
  - MALAISE [None]
  - NEUTROPENIA [None]
  - VOMITING [None]
  - LEUKOPENIA [None]
  - MOUTH ULCERATION [None]
